FAERS Safety Report 4444983-2 (Version None)
Quarter: 2004Q3

REPORT INFORMATION
  Report Type: 
  Country: None (occurrence: None)
  Receive Date: 20040907
  Receipt Date: 20040824
  Transmission Date: 20050211
  Serious: Yes (Life-Threatening, Hospitalization, Disabling)
  Sender: FDA-Public Use
  Company Number: CERZ-10645

PATIENT
  Age: 16 Month
  Sex: Male
  Weight: 8.25 kg

DRUGS (1)
  1. CEREZYME [Suspect]
     Indication: GAUCHER'S DISEASE
     Dosage: 495 UNITS Q2WKS IV
     Route: 042
     Dates: start: 20020730

REACTIONS (6)
  - FAILURE TO THRIVE [None]
  - HEPATOSPLENOMEGALY [None]
  - LOWER RESPIRATORY TRACT INFECTION [None]
  - LUNG INFILTRATION [None]
  - PLATELET COUNT DECREASED [None]
  - THERAPY NON-RESPONDER [None]
